FAERS Safety Report 20481706 (Version 1)
Quarter: 2022Q1

REPORT INFORMATION
  Report Type: Spontaneous
  Country: US (occurrence: US)
  Receive Date: 20220216
  Receipt Date: 20220216
  Transmission Date: 20220424
  Serious: No
  Sender: FDA-Public Use
  Company Number: US-SA-SAC20220214000229

PATIENT
  Sex: Male

DRUGS (3)
  1. KEVZARA [Suspect]
     Active Substance: SARILUMAB
     Indication: Rheumatoid arthritis
     Dosage: 200 MG, QOW STRENGHT-200MG/1.14ML
     Route: 058
     Dates: start: 20211214
  2. ENBREL [Concomitant]
     Active Substance: ETANERCEPT
  3. BENADRYL [Concomitant]
     Active Substance: DIPHENHYDRAMINE HYDROCHLORIDE

REACTIONS (2)
  - Injection site swelling [Unknown]
  - Injection site pruritus [Unknown]
